FAERS Safety Report 5262325-X (Version None)
Quarter: 2007Q1

REPORT INFORMATION
  Report Type: 
  Country: None (occurrence: None)
  Receive Date: 20070308
  Receipt Date: 20070226
  Transmission Date: 20070707
  Serious: Yes (Hospitalization)
  Sender: FDA-Public Use
  Company Number: GXKR2007GB02048

PATIENT
  Age: 84 Year
  Sex: Male

DRUGS (3)
  1. ASPIRIN [Suspect]
     Indication: CARDIAC DISORDER
     Dosage: 75 MG, QD, ORAL
     Route: 048
  2. ATORVASTATIN CALCIUM [Concomitant]
  3. IRBESARTAN [Concomitant]

REACTIONS (2)
  - DUODENAL ULCER [None]
  - HELICOBACTER INFECTION [None]
